FAERS Safety Report 5805822-8 (Version None)
Quarter: 2008Q3

REPORT INFORMATION
  Report Type: 
  Country: None (occurrence: None)
  Receive Date: 20080710
  Receipt Date: 20080702
  Transmission Date: 20090109
  Serious: Yes (Hospitalization)
  Sender: FDA-Public Use
  Company Number: DE-WYE-G01799508

PATIENT
  Sex: Female
  Weight: 100 kg

DRUGS (5)
  1. VENLAFAXINE HCL [Suspect]
     Dosage: OVERDOSE AMOUNT UNKNOWN
     Route: 048
     Dates: start: 20080701, end: 20080701
  2. VALORON N [Suspect]
     Dosage: 10 TABLETS (OVERDOSE AMOUNT 1500 MG)
     Route: 048
     Dates: start: 20080701, end: 20080701
  3. LYRICA [Suspect]
     Dosage: OVERDOSE AMOUNT UNKNOWN
     Route: 048
     Dates: start: 20080701, end: 20080701
  4. LORAZEPAM [Suspect]
     Dosage: OVERDOSE AMOUNT UNKNOWN
     Route: 048
     Dates: start: 20080701, end: 20080701
  5. AMISULPRIDE [Suspect]
     Dosage: OVERDOSE AMOUNT UNKNOWN
     Route: 048
     Dates: start: 20080701, end: 20080701

REACTIONS (6)
  - CARDIOVASCULAR INSUFFICIENCY [None]
  - COMA [None]
  - INTENTIONAL OVERDOSE [None]
  - MYDRIASIS [None]
  - RESPIRATORY FAILURE [None]
  - SUICIDE ATTEMPT [None]
